FAERS Safety Report 6209033-6 (Version None)
Quarter: 2009Q2

REPORT INFORMATION
  Report Type: 
  Country: None (occurrence: None)
  Receive Date: 20090529
  Receipt Date: 20090529
  Transmission Date: 20091009
  Serious: Yes (Hospitalization)
  Sender: FDA-Public Use
  Company Number: PHHO2003DE10837

PATIENT
  Sex: Female
  Weight: 39 kg

DRUGS (5)
  1. SIMULECT SIC+SOLINJ [Suspect]
     Indication: RENAL TRANSPLANT
     Dosage: 20 MG DAY 0
     Route: 042
     Dates: start: 20030615, end: 20030615
  2. SIMULECT SIC+SOLINJ [Suspect]
     Dosage: 20 MG DAY 4
     Route: 042
     Dates: start: 20030619, end: 20030619
  3. NEORAL [Concomitant]
     Indication: RENAL TRANSPLANT
     Dates: start: 20030615
  4. CELLCEPT [Concomitant]
     Indication: RENAL TRANSPLANT
     Dates: start: 20030616
  5. URBASON [Concomitant]
     Indication: RENAL TRANSPLANT
     Dates: start: 20030615

REACTIONS (5)
  - CYTOMEGALOVIRUS INFECTION [None]
  - LEUKOCYTOSIS [None]
  - PYREXIA [None]
  - TRANSAMINASES INCREASED [None]
  - URINARY TRACT INFECTION [None]
